FAERS Safety Report 7225093-8 (Version None)
Quarter: 2011Q1

REPORT INFORMATION
  Report Type: 
  Country: None (occurrence: None)
  Receive Date: 20110113
  Receipt Date: 20101223
  Transmission Date: 20110831
  Serious: No
  Sender: FDA-Public Use
  Company Number: US-B.I. PHARMACEUTICALS,INC./RIDGEFIELD-2010-BP-15420BP

PATIENT
  Sex: Female

DRUGS (11)
  1. TOPROL-XL [Concomitant]
     Indication: HYPERTENSION
  2. MULTIVITAMIN [Concomitant]
     Indication: PROPHYLAXIS
  3. LEVOTHYROXINE [Concomitant]
     Indication: HYPOTHYROIDISM
  4. PRADAXA [Suspect]
     Indication: ATRIAL FIBRILLATION
     Dosage: 300 MG
     Route: 048
     Dates: start: 20101208, end: 20101212
  5. PRAVASTATIN [Concomitant]
     Indication: BLOOD CHOLESTEROL INCREASED
  6. DIGOXIN [Concomitant]
     Indication: CARDIAC DISORDER
  7. OSCAL [Concomitant]
     Indication: PROPHYLAXIS
  8. SPIRONOLACTONE [Concomitant]
     Indication: CARDIAC FAILURE CONGESTIVE
  9. FUROSEMIDE [Concomitant]
     Indication: CARDIAC FAILURE CONGESTIVE
  10. LOSARTAN [Concomitant]
     Indication: HYPERTENSION
  11. CALCITRIOL [Concomitant]
     Indication: PROPHYLAXIS

REACTIONS (1)
  - DIZZINESS [None]
